FAERS Safety Report 18258634 (Version 1)
Quarter: 2020Q3

REPORT INFORMATION
  Report Type: Spontaneous
  Country: DE (occurrence: DE)
  Receive Date: 20200911
  Receipt Date: 20200911
  Transmission Date: 20201103
  Serious: Yes (Other)
  Sender: FDA-Public Use
  Company Number: DE-BIOGEN-2020BI00921475

PATIENT
  Age: 0 Year
  Sex: Female
  Weight: 2.98 kg

DRUGS (2)
  1. TYSABRI [Suspect]
     Active Substance: NATALIZUMAB
     Route: 063
  2. TYSABRI [Suspect]
     Active Substance: NATALIZUMAB
     Indication: MATERNAL EXPOSURE TIMING UNSPECIFIED
     Route: 064
     Dates: start: 2015

REACTIONS (4)
  - Exposure via breast milk [Not Recovered/Not Resolved]
  - Liver function test increased [Not Recovered/Not Resolved]
  - Foetal exposure during pregnancy [Recovered/Resolved]
  - Ankyloglossia congenital [Not Recovered/Not Resolved]

NARRATIVE: CASE EVENT DATE: 2020
